FAERS Safety Report 15216209 (Version 2)
Quarter: 2020Q2

REPORT INFORMATION
  Report Type: Spontaneous
  Country: IT (occurrence: IT)
  Receive Date: 20180730
  Receipt Date: 20200529
  Transmission Date: 20200713
  Serious: Yes (Hospitalization, Disabling, Other)
  Sender: FDA-Public Use
  Company Number: PHHY2018IT056929

PATIENT
  Age: 79 Year
  Sex: Male
  Weight: 75 kg

DRUGS (3)
  1. CLOPIDOGREL [Suspect]
     Active Substance: CLOPIDOGREL BISULFATE
     Indication: ATRIAL FIBRILLATION
     Dosage: UNK
     Route: 065
  2. ASA [Suspect]
     Active Substance: ASPIRIN
     Indication: ATRIAL FIBRILLATION
     Dosage: UNK
     Route: 065
  3. EDOXABAN [Suspect]
     Active Substance: EDOXABAN TOSYLATE
     Indication: ATRIAL FIBRILLATION
     Dosage: 30 MG, QD
     Route: 048
     Dates: start: 20170711, end: 201803

REACTIONS (1)
  - Eye haemorrhage [Not Recovered/Not Resolved]

NARRATIVE: CASE EVENT DATE: 201803
